FAERS Safety Report 6392400-8 (Version None)
Quarter: 2009Q4

REPORT INFORMATION
  Report Type: 
  Country: None (occurrence: None)
  Receive Date: 20091005
  Receipt Date: 20090928
  Transmission Date: 20100525
  Serious: Yes (Hospitalization)
  Sender: FDA-Public Use
  Company Number: WAES 0905USA03181

PATIENT
  Age: 71 Year
  Sex: Male

DRUGS (2)
  1. DECADRON [Suspect]
     Indication: MULTIPLE MYELOMA
     Dosage: PO
     Route: 048
  2. ENZASTAURIN HYDROCHLORIDE [Suspect]
     Indication: MULTIPLE MYELOMA

REACTIONS (2)
  - HAND FRACTURE [None]
  - WOUND [None]
